FAERS Safety Report 5337029-5 (Version None)
Quarter: 2007Q2

REPORT INFORMATION
  Report Type: 
  Country: None (occurrence: None)
  Receive Date: 20070523
  Receipt Date: 20070511
  Transmission Date: 20071010
  Serious: Yes (Death)
  Sender: FDA-Public Use
  Company Number: 6033208

PATIENT
  Age: 77 Year
  Sex: Female

DRUGS (8)
  1. CARDENSIEL 1.25 MG (1.25 MG, TABLET) (BISOPROLOL FUMARATE) [Suspect]
     Indication: DRUG USE FOR UNKNOWN INDICATION
     Dosage: ORAL
     Route: 048
     Dates: start: 20070108
  2. CORDARONE [Suspect]
     Indication: DRUG USE FOR UNKNOWN INDICATION
     Dosage: ORAL
     Route: 048
     Dates: start: 20061020, end: 20070108
  3. PRETERAX (TABLET) (INDAPAMIDE, PERIDOPRIL ERBUMINE) [Concomitant]
  4. PREVISCAN (TABLET) (FLUINDIONE) [Concomitant]
  5. FUROSEMIDE [Concomitant]
  6. DIFFU K (CAPSULE) (POTASSIUM CHLORIDE) [Concomitant]
  7. AMARYL [Concomitant]
  8. GLUCOPHAGE 850 MG (METFORMIN) [Concomitant]

REACTIONS (25)
  - ALANINE AMINOTRANSFERASE INCREASED [None]
  - ASPARTATE AMINOTRANSFERASE INCREASED [None]
  - BLOOD CREATINE INCREASED [None]
  - CARDIO-RESPIRATORY ARREST [None]
  - CARDIOGENIC SHOCK [None]
  - CONDUCTION DISORDER [None]
  - DEHYDRATION [None]
  - DYSPNOEA [None]
  - EJECTION FRACTION DECREASED [None]
  - ELECTROCARDIOGRAM QRS COMPLEX PROLONGED [None]
  - FATIGUE [None]
  - HAEMODIALYSIS [None]
  - HEPATIC ENCEPHALOPATHY [None]
  - HYPERTHERMIA [None]
  - HYPERTHYROIDISM [None]
  - HYPERTROPHIC CARDIOMYOPATHY [None]
  - HYPOGLYCAEMIA [None]
  - INTERNATIONAL NORMALISED RATIO INCREASED [None]
  - LACTIC ACIDOSIS [None]
  - LUNG DISORDER [None]
  - NEURALGIA [None]
  - ORAL HERPES [None]
  - OVERDOSE [None]
  - OXYGEN SATURATION DECREASED [None]
  - PROTHROMBIN TIME PROLONGED [None]
